FAERS Safety Report 5963043-2 (Version None)
Quarter: 2008Q4

REPORT INFORMATION
  Report Type: 
  Country: None (occurrence: None)
  Receive Date: 20081119
  Receipt Date: 20081008
  Transmission Date: 20090506
  Serious: No
  Sender: FDA-Public Use
  Company Number: WAES 0810USA01663

PATIENT
  Age: 75 Year
  Sex: Female

DRUGS (7)
  1. JANUVIA [Suspect]
     Indication: DIABETES MELLITUS
     Dosage: 100 MG/BID/PO
     Route: 048
     Dates: start: 20080808
  2. AMBIEN CR [Concomitant]
  3. DIOVAN [Concomitant]
  4. GLIPIZIDE [Concomitant]
  5. ZETIA [Concomitant]
  6. ZOCOR [Concomitant]
  7. METFORMIN HCL [Concomitant]

REACTIONS (2)
  - BLOOD GLUCOSE INCREASED [None]
  - OVERDOSE [None]
